FAERS Safety Report 5014459-2 (Version None)
Quarter: 2006Q2

REPORT INFORMATION
  Report Type: 
  Country: None (occurrence: None)
  Receive Date: 20060531
  Receipt Date: 20060518
  Transmission Date: 20061013
  Serious: Yes (Hospitalization)
  Sender: FDA-Public Use
  Company Number: GB-BRISTOL-MYERS SQUIBB COMPANY-13383799

PATIENT

DRUGS (8)
  1. CISPLATIN [Suspect]
     Indication: ENDOMETRIAL CANCER
     Dates: start: 20060505, end: 20060505
  2. PACLITAXEL [Suspect]
     Indication: ENDOMETRIAL CANCER
     Dates: start: 20060505, end: 20060505
  3. DOXORUBICIN HCL [Suspect]
     Indication: ENDOMETRIAL CANCER
     Dates: start: 20060505, end: 20060505
  4. METOCLOPRAMIDE [Concomitant]
  5. LACTULOSE [Concomitant]
  6. LANSOPRAZOLE [Concomitant]
  7. MAGNESIUM OXIDE [Concomitant]
  8. NYSTATIN [Concomitant]

REACTIONS (1)
  - URINARY TRACT INFECTION [None]
